APPROVED DRUG PRODUCT: ETOMIDATE
Active Ingredient: ETOMIDATE
Strength: 2MG/ML
Dosage Form/Route: INJECTABLE;INJECTION
Application: A202354 | Product #001 | TE Code: AP
Applicant: HIKMA FARMACEUTICA PORTUGAL SA
Approved: Feb 25, 2016 | RLD: No | RS: No | Type: RX